FAERS Safety Report 7678524-3 (Version None)
Quarter: 2011Q3

REPORT INFORMATION
  Report Type: 
  Country: None (occurrence: None)
  Receive Date: 20110811
  Receipt Date: 20110804
  Transmission Date: 20111222
  Serious: Yes (Other)
  Sender: FDA-Public Use
  Company Number: US-PFIZER INC-2011061538

PATIENT
  Sex: Male

DRUGS (3)
  1. MEDROL [Suspect]
     Dosage: 12 MG, DAILY
     Dates: start: 20110317, end: 20110319
  2. MEDROL [Suspect]
     Indication: OSTEITIS
     Dosage: 16 MG, DAILY
     Dates: start: 20110314, end: 20110316
  3. MEDROL [Suspect]
     Dosage: 9 MG, DAILY
     Dates: start: 20110320, end: 20110321

REACTIONS (2)
  - ABASIA [None]
  - MUSCULAR WEAKNESS [None]
